FAERS Safety Report 4366152-7 (Version None)
Quarter: 2004Q2

REPORT INFORMATION
  Report Type: 
  Country: None (occurrence: None)
  Receive Date: 20040524
  Receipt Date: 20040514
  Transmission Date: 20050107
  Serious: Yes (Other)
  Sender: FDA-Public Use
  Company Number: FR-SHR-04-024412

PATIENT
  Age: 45 Year
  Sex: Female
  Weight: 85 kg

DRUGS (2)
  1. MIRENA [Suspect]
     Indication: MENORRHAGIA
     Dosage: 20 UG/DAY, CONT, INTRA-UTERINE
     Route: 015
     Dates: start: 20030123, end: 20040420
  2. PREVISCAN (FLUINDIONE) [Concomitant]

REACTIONS (1)
  - DEEP VEIN THROMBOSIS [None]
